FAERS Safety Report 4703451-0 (Version None)
Quarter: 2005Q2

REPORT INFORMATION
  Report Type: 
  Country: None (occurrence: None)
  Receive Date: 20050629
  Receipt Date: 20050613
  Transmission Date: 20051028
  Serious: Yes (Hospitalization)
  Sender: FDA-Public Use
  Company Number: USA030946188

PATIENT
  Age: 61 Year
  Sex: Male
  Weight: 58 kg

DRUGS (4)
  1. HUMALOG [Suspect]
     Indication: DIABETES MELLITUS
     Dates: start: 20030101
  2. HUMULIN R [Suspect]
     Indication: DIABETES MELLITUS
     Dosage: 10 U/D
  3. HUMULIN L [Suspect]
     Indication: DIABETES MELLITUS
     Dosage: 25 U/D
  4. HUMULIN N [Suspect]
     Indication: DIABETES MELLITUS
     Dates: start: 19960101, end: 19970101

REACTIONS (11)
  - BLOOD GLUCOSE FLUCTUATION [None]
  - CARPAL TUNNEL SYNDROME [None]
  - DEVICE FAILURE [None]
  - EXOSTOSIS [None]
  - IMPAIRED HEALING [None]
  - INJECTION SITE HYPERTROPHY [None]
  - LIGAMENT DISORDER [None]
  - MOVEMENT DISORDER [None]
  - PHARMACEUTICAL PRODUCT COMPLAINT [None]
  - ROTATOR CUFF SYNDROME [None]
  - WEIGHT DECREASED [None]
